FAERS Safety Report 5529096-0 (Version None)
Quarter: 2007Q4

REPORT INFORMATION
  Report Type: 
  Country: None (occurrence: None)
  Receive Date: 20071129
  Receipt Date: 20061201
  Transmission Date: 20080405
  Serious: No
  Sender: FDA-Public Use
  Company Number: A0629920A

PATIENT
  Age: 59 Year
  Sex: Female

DRUGS (4)
  1. BUPROPION HYDROCHLORIDE [Suspect]
     Indication: DEPRESSION
     Dosage: 150MG TWICE PER DAY
     Route: 048
     Dates: start: 20061025
  2. XANAX [Concomitant]
  3. ATIVAN [Concomitant]
  4. TUMS [Concomitant]

REACTIONS (3)
  - MUSCLE TIGHTNESS [None]
  - NAUSEA [None]
  - PAROSMIA [None]
